FAERS Safety Report 5457982-9 (Version None)
Quarter: 2007Q3

REPORT INFORMATION
  Report Type: 
  Country: None (occurrence: None)
  Receive Date: 20070917
  Receipt Date: 20070908
  Transmission Date: 20080115
  Serious: Yes (Other)
  Sender: FDA-Public Use
  Company Number: CHPA2007US09483

PATIENT
  Age: 33 Year
  Sex: Male

DRUGS (1)
  1. COMTREX DEEP CHEST (NCH)(DEXTROMETHORPHAN, PARACETAMOL, PSEUDOEPHEDRIN [Suspect]
     Indication: LOWER RESPIRATORY TRACT INFECTION
     Dosage: 2 DF, BID, ORAL
     Route: 048
     Dates: start: 20070903, end: 20070904

REACTIONS (2)
  - HYPERSENSITIVITY [None]
  - OEDEMA PERIPHERAL [None]
